FAERS Safety Report 7002560-3 (Version None)
Quarter: 2010Q3

REPORT INFORMATION
  Report Type: 
  Country: None (occurrence: None)
  Receive Date: 20100920
  Receipt Date: 20091214
  Transmission Date: 20110219
  Serious: No
  Sender: FDA-Public Use
  Company Number: US-ASTRAZENECA-2009SE32253

PATIENT
  Sex: Male
  Weight: 72.6 kg

DRUGS (3)
  1. SEROQUEL [Suspect]
     Route: 048
  2. NAMENDA [Concomitant]
  3. ARICEPT [Concomitant]

REACTIONS (2)
  - FALL [None]
  - WEIGHT INCREASED [None]
